FAERS Safety Report 13706529 (Version 2)
Quarter: 2017Q3

REPORT INFORMATION
  Report Type: Spontaneous
  Country: US (occurrence: US)
  Receive Date: 20170630
  Receipt Date: 20170814
  Transmission Date: 20171127
  Serious: Yes (Hospitalization, Other)
  Sender: FDA-Public Use
  Company Number: US-ASTRAZENECA-2017SE66628

PATIENT
  Age: 994 Month
  Sex: Female
  Weight: 87.1 kg

DRUGS (5)
  1. TUDORZA PRESSAIR [Suspect]
     Active Substance: ACLIDINIUM BROMIDE
     Indication: CHRONIC OBSTRUCTIVE PULMONARY DISEASE
     Route: 055
     Dates: start: 20170610
  2. TUDORZA PRESSAIR [Suspect]
     Active Substance: ACLIDINIUM BROMIDE
     Indication: CHRONIC OBSTRUCTIVE PULMONARY DISEASE
     Dosage: 400 UG ONE PUFF TWO TIMES A DAY
     Route: 055
     Dates: start: 20170618
  3. SYMBICORT [Suspect]
     Active Substance: BUDESONIDE\FORMOTEROL FUMARATE DIHYDRATE
     Indication: CHRONIC OBSTRUCTIVE PULMONARY DISEASE
     Dosage: 2 PUFFS TWICE A DAY
     Route: 055
     Dates: start: 2016
  4. TUDORZA PRESSAIR [Suspect]
     Active Substance: ACLIDINIUM BROMIDE
     Indication: CHRONIC OBSTRUCTIVE PULMONARY DISEASE
     Dosage: 400 UG ONE PUFF DAILY
     Route: 055
     Dates: start: 201703, end: 20170618
  5. TUDORZA PRESSAIR [Suspect]
     Active Substance: ACLIDINIUM BROMIDE
     Indication: CHRONIC OBSTRUCTIVE PULMONARY DISEASE
     Dosage: 400 UG ONE PUFF THREE TIMES A DAY
     Route: 055

REACTIONS (7)
  - Cardiac failure congestive [Not Recovered/Not Resolved]
  - Drug dose omission [Unknown]
  - Off label use [Recovered/Resolved]
  - Ascites [Recovering/Resolving]
  - Oedema peripheral [Recovering/Resolving]
  - Intentional product misuse [Unknown]
  - Device malfunction [Unknown]

NARRATIVE: CASE EVENT DATE: 201703
